FAERS Safety Report 6305027-0 (Version None)
Quarter: 2009Q3

REPORT INFORMATION
  Report Type: 
  Country: None (occurrence: None)
  Receive Date: 20090806
  Receipt Date: 20090731
  Transmission Date: 20100115
  Serious: Yes (Life-Threatening, Other)
  Sender: FDA-Public Use
  Company Number: 2009SP017389

PATIENT
  Age: 31 Year
  Sex: Female

DRUGS (1)
  1. CLARITIN-D 24 HOUR [Suspect]
     Indication: URTICARIA
     Dosage: 10 MG; PO
     Route: 048

REACTIONS (1)
  - THROAT TIGHTNESS [None]
